FAERS Safety Report 9255200 (Version 2)
Quarter: 2013Q2

REPORT INFORMATION
  Report Type: Spontaneous
  Country: CA (occurrence: CA)
  Receive Date: 20130425
  Receipt Date: 20130612
  Transmission Date: 20140414
  Serious: Yes (Life-Threatening, Other)
  Sender: FDA-Public Use
  Company Number: CA-JNJFOC-20130412165

PATIENT
  Age: 73 Year
  Sex: Female
  Weight: 78 kg

DRUGS (7)
  1. XARELTO [Suspect]
     Indication: KNEE ARTHROPLASTY
     Route: 048
  2. XARELTO [Suspect]
     Indication: THROMBOSIS PROPHYLAXIS
     Route: 048
  3. RABEPRAZOLE [Concomitant]
     Route: 065
  4. HYDROCHLOROTHIAZIDE W/IRBESARTAN [Concomitant]
     Route: 065
  5. TRAZODONE [Concomitant]
     Route: 065
  6. CORTISONE [Concomitant]
     Route: 065
  7. FLORINEF [Concomitant]
     Route: 065

REACTIONS (3)
  - Deep vein thrombosis [Unknown]
  - Drug ineffective [Unknown]
  - Pulmonary embolism [Unknown]
